FAERS Safety Report 23272781 (Version 1)
Quarter: 2023Q4

REPORT INFORMATION
  Report Type: Spontaneous
  Country: CA (occurrence: CA)
  Receive Date: 20231207
  Receipt Date: 20231207
  Transmission Date: 20240109
  Serious: Yes (Other)
  Sender: FDA-Public Use
  Company Number: CA-FERRINGPH-2023FE05972

PATIENT

DRUGS (3)
  1. ENDOMETRIN [Suspect]
     Active Substance: PROGESTERONE
     Indication: Assisted reproductive technology
     Dosage: 100 MG
     Route: 067
     Dates: start: 202207, end: 202207
  2. ENDOMETRIN [Suspect]
     Active Substance: PROGESTERONE
     Dosage: 100 MG
     Route: 067
     Dates: start: 20230224, end: 20230605
  3. CIPRALEX [Concomitant]
     Active Substance: ESCITALOPRAM OXALATE
     Indication: Anxiety disorder
     Dosage: 10 MG, DAILY
     Route: 048
     Dates: start: 2012

REACTIONS (1)
  - Ectopic pregnancy [Recovered/Resolved]

NARRATIVE: CASE EVENT DATE: 20220701
